FAERS Safety Report 18608242 (Version 11)
Quarter: 2021Q3

REPORT INFORMATION
  Report Type: Report from Study
  Country: GB (occurrence: GB)
  Receive Date: 20201212
  Receipt Date: 20210820
  Transmission Date: 20211014
  Serious: Yes (Other)
  Sender: FDA-Public Use
  Company Number: NVSC2020GB312164

PATIENT
  Age: 62 Year
  Sex: Female

DRUGS (3)
  1. OCTREOTIDE. [Concomitant]
     Active Substance: OCTREOTIDE
     Indication: PRODUCT USED FOR UNKNOWN INDICATION
     Dosage: UNK UNK, PRN
     Route: 058
  2. LANREOTIDE [Concomitant]
     Active Substance: LANREOTIDE
     Indication: PRODUCT USED FOR UNKNOWN INDICATION
     Dosage: UNK UNK, Q4W
     Route: 065
  3. LUTATHERA [Suspect]
     Active Substance: LUTETIUM OXODOTREOTIDE LU-177
     Indication: NEUROENDOCRINE TUMOUR
     Dosage: UNK (8?12 WEEKS)
     Route: 042
     Dates: start: 20201105

REACTIONS (16)
  - Kidney infection [Unknown]
  - Incontinence [Unknown]
  - Nausea [Recovering/Resolving]
  - Urinary tract infection [Unknown]
  - Back pain [Not Recovered/Not Resolved]
  - Chromaturia [Unknown]
  - Pain [Recovering/Resolving]
  - Vomiting [Recovering/Resolving]
  - Diarrhoea [Recovering/Resolving]
  - Malaise [Unknown]
  - Fatigue [Recovering/Resolving]
  - Cough [Recovering/Resolving]
  - SARS-CoV-2 test positive [Unknown]
  - Abdominal pain [Recovering/Resolving]
  - Pollakiuria [Unknown]
  - Alopecia [Unknown]

NARRATIVE: CASE EVENT DATE: 20210114
